FAERS Safety Report 7293267 (Version 5)
Quarter: 2020Q3

REPORT INFORMATION
  Report Type: Report from Study
  Country: CL (occurrence: CL)
  Receive Date: 20100224
  Receipt Date: 20100430
  Transmission Date: 20201104
  Serious: Yes (Hospitalization)
  Sender: FDA-Public Use
  Company Number: CL-WYE-H13512610

PATIENT
  Age: 65 Year
  Sex: Male
  Weight: 72 kg

DRUGS (2)
  1. INTERFERON ALFA NOS [Suspect]
     Active Substance: INTERFERON ALFA-2A OR INTERFERON ALFA-2B
     Indication: RENAL CELL CARCINOMA
     Dosage: 9 MU 3 X WEEK
     Route: 058
     Dates: start: 20090727, end: 20100202
  2. BEVACIZUMAB. [Suspect]
     Active Substance: BEVACIZUMAB
     Indication: RENAL CELL CARCINOMA
     Route: 042
     Dates: start: 20090727, end: 20100202

REACTIONS (1)
  - Anal fistula [Recovered/Resolved]

NARRATIVE: CASE EVENT DATE: 20100211
